FAERS Safety Report 8922997 (Version 1)
Quarter: 2012Q4

REPORT INFORMATION
  Report Type: 
  Country: JP (occurrence: JP)
  Receive Date: 20121123
  Receipt Date: 20121123
  Transmission Date: 20130627
  Serious: Yes (Hospitalization)
  Sender: FDA-Public Use
  Company Number: JP-JNJFOC-20121108418

PATIENT

DRUGS (1)
  1. REMICADE [Suspect]
     Indication: CROHN^S DISEASE
     Dosage: Infusion was given at 0, 2 and 6 weeks and then every 8 weeks.
     Route: 042

REACTIONS (8)
  - Intestinal stenosis [Unknown]
  - No therapeutic response [Unknown]
  - Infusion related reaction [Unknown]
  - Condition aggravated [Unknown]
  - Hepatitis B [Unknown]
  - Lupus-like syndrome [Unknown]
  - Pneumonia cryptococcal [Unknown]
  - Tuberculous pleurisy [Unknown]
